FAERS Safety Report 4765073-5 (Version None)
Quarter: 2005Q3

REPORT INFORMATION
  Report Type: 
  Country: None (occurrence: None)
  Receive Date: 20050907
  Receipt Date: 20050825
  Transmission Date: 20060218
  Serious: Yes (Other)
  Sender: FDA-Public Use
  Company Number: 2005120526

PATIENT
  Age: 30 Year
  Sex: Female

DRUGS (2)
  1. GEODON [Suspect]
     Indication: SCHIZOAFFECTIVE DISORDER
     Dosage: ORAL
     Route: 048
     Dates: start: 20050101
  2. CLOZARIL [Concomitant]

REACTIONS (7)
  - ALLERGY TO CHEMICALS [None]
  - ARTHRALGIA [None]
  - BIPOLAR DISORDER [None]
  - INSOMNIA [None]
  - INTERVERTEBRAL DISC INJURY [None]
  - NERVE COMPRESSION [None]
  - WEIGHT INCREASED [None]
